FAERS Safety Report 4417856-9 (Version None)
Quarter: 2004Q3

REPORT INFORMATION
  Report Type: 
  Country: None (occurrence: None)
  Receive Date: 20040803
  Receipt Date: 20040719
  Transmission Date: 20050211
  Serious: Yes (Hospitalization)
  Sender: FDA-Public Use
  Company Number: 2004GB01534

PATIENT
  Age: 61 Year
  Sex: Female
  Weight: 76 kg

DRUGS (6)
  1. ARIMIDEX [Suspect]
     Indication: BREAST CANCER METASTATIC
     Dosage: 1 MG DAILY PO
     Route: 048
     Dates: start: 20040607, end: 20040614
  2. TRANDATE [Concomitant]
  3. LIPITOR [Concomitant]
  4. RANITIDINE [Concomitant]
  5. SENNA TABLET [Concomitant]
  6. FYBOGEL [Concomitant]

REACTIONS (1)
  - ANAPHYLACTIC REACTION [None]
